FAERS Safety Report 20770899 (Version 2)
Quarter: 2022Q2

REPORT INFORMATION
  Report Type: Spontaneous
  Country: JP (occurrence: JP)
  Receive Date: 20220429
  Receipt Date: 20220530
  Transmission Date: 20220720
  Serious: Yes (Hospitalization, Other)
  Sender: FDA-Public Use
  Company Number: JP-AMGEN-JPNSP2022022318

PATIENT
  Age: 90 Year
  Sex: Female
  Weight: 32 kg

DRUGS (3)
  1. EVENITY [Suspect]
     Active Substance: ROMOSOZUMAB-AQQG
     Indication: Osteoporosis
     Dosage: 210 MILLIGRAM, QWK
     Route: 058
     Dates: start: 20210712, end: 20210810
  2. CALONAL [Concomitant]
     Active Substance: ACETAMINOPHEN
     Indication: Femur fracture
     Dosage: 1 DOSAGE FORM, QD, 2 DOSAGE FORM, TID, 2 DOSAGE FORM, BID
     Dates: start: 20210704, end: 20210730
  3. ALFACALCIDOL [Concomitant]
     Active Substance: ALFACALCIDOL
     Indication: Osteoporosis
     Dosage: 1 DOSAGE FORM, QD
     Dates: start: 20210318, end: 20210815

REACTIONS (2)
  - Myocardial infarction [Recovering/Resolving]
  - Off label use [Unknown]

NARRATIVE: CASE EVENT DATE: 20210712
